FAERS Safety Report 4504058-0 (Version None)
Quarter: 2004Q4

REPORT INFORMATION
  Report Type: 
  Country: None (occurrence: None)
  Receive Date: 20041115
  Receipt Date: 20041018
  Transmission Date: 20050328
  Serious: Yes (Death, Hospitalization)
  Sender: FDA-Public Use
  Company Number: A03200403732

PATIENT
  Age: 60 Year
  Sex: Female

DRUGS (2)
  1. PLAQUENIL [Suspect]
     Dosage: ORAL
     Route: 048
     Dates: end: 20030101
  2. METHOTREXATE [Suspect]
     Dosage: ORAL
     Dates: start: 20030101

REACTIONS (4)
  - ARRHYTHMIA [None]
  - CARDIAC ARREST [None]
  - HYPOTENSION [None]
  - MULTIPLE DRUG OVERDOSE [None]
